FAERS Safety Report 25368704 (Version 3)
Quarter: 2025Q3

REPORT INFORMATION
  Report Type: Spontaneous
  Country: JP (occurrence: JP)
  Receive Date: 20250528
  Receipt Date: 20250801
  Transmission Date: 20251020
  Serious: No
  Sender: EISAI
  Company Number: JP-Eisai-202413316_LEN-EC_P_1

PATIENT
  Age: 57 Year
  Sex: Female

DRUGS (5)
  1. LENVATINIB [Suspect]
     Active Substance: LENVATINIB
     Indication: Endometrial cancer
     Dates: start: 20221114, end: 20221226
  2. LENVATINIB [Suspect]
     Active Substance: LENVATINIB
     Dates: start: 20230206, end: 20230630
  3. LENVATINIB [Suspect]
     Active Substance: LENVATINIB
     Dates: start: 2023, end: 20230922
  4. LENVATINIB [Suspect]
     Active Substance: LENVATINIB
     Dates: start: 20231002, end: 20240122
  5. PEMBROLIZUMAB [Concomitant]
     Active Substance: PEMBROLIZUMAB
     Indication: Endometrial cancer
     Dosage: 19 COURSES
     Dates: start: 20221114, end: 20240122

REACTIONS (4)
  - Palmar-plantar erythrodysaesthesia syndrome [Recovered/Resolved]
  - Proteinuria [Recovered/Resolved]
  - Pneumothorax [Recovered/Resolved]
  - Malignant neoplasm progression [Unknown]

NARRATIVE: CASE EVENT DATE: 20221226
